FAERS Safety Report 18573707 (Version 3)
Quarter: 2021Q1

REPORT INFORMATION
  Report Type: Report from Study
  Country: DE (occurrence: DE)
  Receive Date: 20201203
  Receipt Date: 20210324
  Transmission Date: 20210419
  Serious: Yes (Other)
  Sender: FDA-Public Use
  Company Number: DE-SUN PHARMACEUTICAL INDUSTRIES LTD-2020RR-258598

PATIENT
  Age: 74 Year
  Sex: Female

DRUGS (1)
  1. ODOMZO [Suspect]
     Active Substance: SONIDEGIB
     Indication: BASAL CELL CARCINOMA
     Dosage: 200 MILLIGRAM, DAILY
     Route: 048
     Dates: start: 20200623, end: 20201012

REACTIONS (4)
  - Nausea [Recovered/Resolved]
  - Acute kidney injury [Unknown]
  - Muscle spasms [Recovered/Resolved]
  - Fatigue [Unknown]

NARRATIVE: CASE EVENT DATE: 20201013
